FAERS Safety Report 20407086 (Version 1)
Quarter: 2022Q1

REPORT INFORMATION
  Report Type: Spontaneous
  Country: CZ (occurrence: CZ)
  Receive Date: 20220131
  Receipt Date: 20220131
  Transmission Date: 20220423
  Serious: Yes (Life-Threatening, Other)
  Sender: FDA-Public Use
  Company Number: CZ-LUPIN PHARMACEUTICALS INC.-2022-01110

PATIENT
  Age: 11 Year
  Sex: Female

DRUGS (15)
  1. CELECOXIB [Suspect]
     Active Substance: CELECOXIB
     Indication: Oligoastrocytoma
     Dosage: UNK, (LOW DOSE COMBAT METRONOMIC CHEMOTHERAPY)
     Route: 065
  2. CELECOXIB [Suspect]
     Active Substance: CELECOXIB
     Dosage: UNK, (DOSING SCHEDULE WAS REDUCED BY 50% AND COMPLETELY STOPPED AFTERWARDS)
     Route: 065
  3. FENOFIBRATE [Suspect]
     Active Substance: FENOFIBRATE
     Indication: Oligoastrocytoma
     Dosage: UNK, (COMBAT II)
     Route: 065
  4. FENOFIBRATE [Suspect]
     Active Substance: FENOFIBRATE
     Dosage: UNK, (DOSING SCHEDULE WAS REDUCED BY 50% AND COMPLETELY STOPPED AFTERWARDS)
     Route: 065
  5. TEMOZOLOMIDE [Suspect]
     Active Substance: TEMOZOLOMIDE
     Indication: Oligoastrocytoma
     Dosage: 90 MILLIGRAM/SQ. METER
     Route: 065
  6. TEMOZOLOMIDE [Suspect]
     Active Substance: TEMOZOLOMIDE
     Dosage: 30 MILLIGRAM/SQ. METER, QD (LOW DOSE COMBAT METRONOMIC CHEMOTHERAPY; FOR 42 DAYS)
     Route: 065
  7. ETOPOSIDE [Suspect]
     Active Substance: ETOPOSIDE
     Indication: Oligoastrocytoma
     Dosage: 25 MILLIGRAM/SQ. METER, QD (LOW DOSE COMBAT METRONOMIC CHEMOTHERAPY)
     Route: 065
  8. ETOPOSIDE [Suspect]
     Active Substance: ETOPOSIDE
     Dosage: UNK (DOSING SCHEDULE WAS REDUCED BY 50% AND COMPLETELY STOPPED AFTERWARDS)
     Route: 065
  9. VITAMIN D [Suspect]
     Active Substance: VITAMIN D NOS
     Indication: Oligoastrocytoma
     Dosage: UNK, (COMBAT II) (DOSING SCHEDULE WAS REDUCED BY 50% AND COMPLETELY STOPPED AFTERWARDS)
     Route: 065
  10. BEVACIZUMAB [Suspect]
     Active Substance: BEVACIZUMAB
     Indication: Oligoastrocytoma
     Dosage: UNK, (COMBAT III)
     Route: 065
  11. BEVACIZUMAB [Suspect]
     Active Substance: BEVACIZUMAB
     Dosage: UNK, (DOSING SCHEDULE WAS REDUCED BY 50% AND COMPLETELY STOPPED AFTERWARDS)
     Route: 065
  12. TRETINOIN [Suspect]
     Active Substance: TRETINOIN
     Indication: Oligoastrocytoma
     Dosage: UNK, (LOW DOSE COMBAT METRONOMIC CHEMOTHERAPY)
     Route: 065
  13. TRETINOIN [Suspect]
     Active Substance: TRETINOIN
     Dosage: UNK, (DOSING SCHEDULE WAS REDUCED BY 50% AND COMPLETELY STOPPED AFTERWARDS)
     Route: 065
  14. VINBLASTINE [Suspect]
     Active Substance: VINBLASTINE
     Indication: Oligoastrocytoma
     Dosage: 6 MILLIGRAM/SQ. METER EVERY WEEK
     Route: 065
  15. VINBLASTINE [Suspect]
     Active Substance: VINBLASTINE
     Dosage: 2 MILLIGRAM/SQ. METER EVERY WEEK
     Route: 065

REACTIONS (1)
  - Myelosuppression [Unknown]
